FAERS Safety Report 8117069-3 (Version None)
Quarter: 2012Q1

REPORT INFORMATION
  Report Type: 
  Country: None (occurrence: None)
  Receive Date: 20120206
  Receipt Date: 20120131
  Transmission Date: 20120608
  Serious: Yes (Other)
  Sender: FDA-Public Use
  Company Number: BR-PFIZER INC-2011297173

PATIENT
  Age: 67 Year
  Sex: Female

DRUGS (8)
  1. LIPITOR [Suspect]
     Dosage: 40 MG, 1X/DAY
     Route: 048
     Dates: start: 20100101, end: 20110401
  2. LIPITOR [Suspect]
     Indication: BLOOD CHOLESTEROL INCREASED
     Dosage: 20 MG, 1X/DAY
     Route: 048
     Dates: start: 20090201, end: 20100101
  3. DIOVAN HCT [Concomitant]
     Indication: HYPERTENSION
     Dosage: ONE TABLET (320/12.5) ONCE DAILY
  4. LEVOTHYROXINE SODIUM [Concomitant]
     Indication: THYROID DISORDER
     Dosage: ONE TABLET (UNSPECIFIED DOSAGE) ONCE DAILY
     Dates: start: 19930101
  5. DRENOL [Concomitant]
     Indication: DIURETIC THERAPY
     Dosage: ONE TABLET (UNSPECIFIED DOSAGE) ONCE DAILY
     Dates: start: 20101201
  6. CALTRATE [Concomitant]
     Dosage: ONE TABLET (UNSPECIFIED DOSAGE) ONCE DAILY
  7. DAFORIN [Concomitant]
     Indication: RELAXATION THERAPY
     Dosage: ONE TABLET (UNSPECIFIED DOSAGE) ONCE DAILY
     Dates: start: 20101201
  8. PANTOPRAZOLE [Concomitant]
     Indication: DYSPEPSIA
     Dosage: ONE TABLET (UNSPECIFIED DOSAGE) ONCE DAILY

REACTIONS (4)
  - EATING DISORDER [None]
  - BLOOD CHOLESTEROL INCREASED [None]
  - MUSCULOSKELETAL PAIN [None]
  - WEIGHT DECREASED [None]
